FAERS Safety Report 20465867 (Version 1)
Quarter: 2022Q1

REPORT INFORMATION
  Report Type: Spontaneous
  Country: US (occurrence: US)
  Receive Date: 20220212
  Receipt Date: 20220212
  Transmission Date: 20220423
  Serious: Yes (Death, Hospitalization)
  Sender: FDA-Public Use
  Company Number: US-JNJFOC-20220217058

PATIENT
  Age: 47 Year
  Sex: Male

DRUGS (8)
  1. DURAGESIC [Suspect]
     Active Substance: FENTANYL
     Indication: Product used for unknown indication
     Route: 048
  2. DURAGESIC [Suspect]
     Active Substance: FENTANYL
     Route: 051
  3. METHAMPHETAMINE [Suspect]
     Active Substance: METHAMPHETAMINE
     Indication: Product used for unknown indication
     Route: 048
  4. METHAMPHETAMINE [Suspect]
     Active Substance: METHAMPHETAMINE
     Route: 051
  5. HEROIN [Suspect]
     Active Substance: DIAMORPHINE
     Indication: Product used for unknown indication
     Route: 048
  6. HEROIN [Suspect]
     Active Substance: DIAMORPHINE
     Route: 051
  7. PROPOFOL [Suspect]
     Active Substance: PROPOFOL
     Indication: Product used for unknown indication
     Route: 048
  8. PROPOFOL [Suspect]
     Active Substance: PROPOFOL
     Route: 051

REACTIONS (3)
  - Intentional product use issue [Fatal]
  - Intentional product misuse [Fatal]
  - Toxicity to various agents [Fatal]
